FAERS Safety Report 4809701-4 (Version None)
Quarter: 2005Q4

REPORT INFORMATION
  Report Type: 
  Country: None (occurrence: None)
  Receive Date: 20051021
  Receipt Date: 20050615
  Transmission Date: 20060501
  Serious: Yes (Other)
  Sender: FDA-Public Use
  Company Number: USA0506100519

PATIENT
  Sex: Female
  Weight: 136 kg

DRUGS (1)
  1. ZYPREXA [Suspect]
     Dates: start: 20040301, end: 20040501

REACTIONS (3)
  - CHEST PAIN [None]
  - THROMBOSIS [None]
  - WEIGHT INCREASED [None]
